FAERS Safety Report 12253474 (Version 2)
Quarter: 2016Q4

REPORT INFORMATION
  Report Type: Spontaneous
  Country: FR (occurrence: FR)
  Receive Date: 20160411
  Receipt Date: 20161107
  Transmission Date: 20170207
  Serious: Yes (Hospitalization)
  Sender: FDA-Public Use
  Company Number: FR-SA-2016SA069108

PATIENT
  Age: 70 Year
  Sex: Female

DRUGS (4)
  1. DOLIPRANE [Concomitant]
     Active Substance: ACETAMINOPHEN
  2. AUBAGIO [Suspect]
     Active Substance: TERIFLUNOMIDE
     Indication: MULTIPLE SCLEROSIS
     Route: 065
     Dates: start: 20150407, end: 20160307
  3. BETAFERON [Concomitant]
     Active Substance: INTERFERON BETA-1B
     Indication: MULTIPLE SCLEROSIS
     Dates: start: 1998
  4. VIDAZA [Suspect]
     Active Substance: AZACITIDINE
     Indication: ACUTE MYELOID LEUKAEMIA
     Route: 065

REACTIONS (10)
  - Phlebectomy [Unknown]
  - Leukopenia [Unknown]
  - Renal cyst [Unknown]
  - Abdominal pain lower [Unknown]
  - Haemoglobin decreased [Recovering/Resolving]
  - Gastrointestinal wall thickening [Unknown]
  - Asthenia [Unknown]
  - Thrombocytopenia [Not Recovered/Not Resolved]
  - Dyspnoea exertional [Unknown]
  - Renal haemorrhage [Unknown]

NARRATIVE: CASE EVENT DATE: 20150921
